FAERS Safety Report 16310616 (Version 2)
Quarter: 2019Q2

REPORT INFORMATION
  Report Type: Spontaneous
  Country: US (occurrence: US)
  Receive Date: 20190514
  Receipt Date: 20190624
  Transmission Date: 20190711
  Serious: Yes (Hospitalization, Other)
  Sender: FDA-Public Use
  Company Number: US-REGENERON PHARMACEUTICALS, INC.-2019-31180

PATIENT

DRUGS (5)
  1. METFORMIN [Concomitant]
     Active Substance: METFORMIN HYDROCHLORIDE
     Indication: PRODUCT USED FOR UNKNOWN INDICATION
     Dosage: 500 MG, 2 P.O. QD IN THE MORNING
     Route: 048
  2. LIBTAYO [Suspect]
     Active Substance: CEMIPLIMAB-RWLC
     Indication: SQUAMOUS CELL CARCINOMA OF SKIN
     Dosage: 350 MG, EVERY 21 DAYS
     Route: 042
     Dates: start: 20181217
  3. LIBTAYO [Suspect]
     Active Substance: CEMIPLIMAB-RWLC
     Dosage: 350 MG, EVERY 21 DAYS
     Dates: start: 20190410, end: 20190410
  4. ACETAMINOPHEN. [Concomitant]
     Active Substance: ACETAMINOPHEN
     Indication: PRODUCT USED FOR UNKNOWN INDICATION
     Dosage: 325 MG PRN
     Dates: start: 20181205
  5. LATANOPROST. [Concomitant]
     Active Substance: LATANOPROST
     Indication: PRODUCT USED FOR UNKNOWN INDICATION
     Dosage: 0.005 %, QD

REACTIONS (16)
  - Hypothalamo-pituitary disorder [Unknown]
  - Heart rate abnormal [Unknown]
  - Performance status decreased [Unknown]
  - Memory impairment [Unknown]
  - Chromaturia [Unknown]
  - Asthenia [Unknown]
  - Arthralgia [Unknown]
  - Hyponatraemia [Recovered/Resolved]
  - Blood thyroid stimulating hormone increased [Not Recovered/Not Resolved]
  - Intentional dose omission [Unknown]
  - Urinary tract infection [Unknown]
  - Blood calcium decreased [Unknown]
  - Hypoacusis [Unknown]
  - Fall [Unknown]
  - Unevaluable event [Unknown]
  - Rash [Unknown]

NARRATIVE: CASE EVENT DATE: 20181219
